FAERS Safety Report 8808529 (Version 1)
Quarter: 2012Q4

REPORT INFORMATION
  Report Type: Spontaneous
  Country: US (occurrence: None)
  Receive Date: 20120920
  Receipt Date: 20120920
  Transmission Date: 20130627
  Serious: Yes (Life-Threatening, Hospitalization, Other)
  Sender: FDA-Public Use
  Company Number: None

PATIENT
  Age: 64 Year
  Sex: Male
  Weight: 113.4 kg

DRUGS (1)
  1. ANDROGEL [Suspect]
     Indication: VIRILISM
     Dosage: 5 grams daily top
     Route: 061

REACTIONS (2)
  - Deep vein thrombosis [None]
  - Pulmonary embolism [None]
